FAERS Safety Report 13115068 (Version 1)
Quarter: 2017Q1

REPORT INFORMATION
  Report Type: Spontaneous
  Country: US (occurrence: US)
  Receive Date: 20170113
  Receipt Date: 20170113
  Transmission Date: 20170428
  Serious: Yes (Hospitalization, Other)
  Sender: FDA-Public Use
  Company Number: PHHY2017US001125

PATIENT
  Age: 15 Year
  Sex: Female

DRUGS (1)
  1. THIAMAZOLE [Suspect]
     Active Substance: METHIMAZOLE
     Indication: BASEDOW^S DISEASE
     Route: 065

REACTIONS (3)
  - Sudden visual loss [Recovering/Resolving]
  - Neuropathy peripheral [Recovering/Resolving]
  - Vasculitis [Recovering/Resolving]
